FAERS Safety Report 26126534 (Version 2)
Quarter: 2025Q4

REPORT INFORMATION
  Report Type: Spontaneous
  Country: JP (occurrence: JP)
  Receive Date: 20251205
  Receipt Date: 20251218
  Transmission Date: 20260118
  Serious: No
  Sender: BIOMARIN
  Company Number: JP-BIOMARINAP-JP-2025-170474

PATIENT
  Age: 31 Year
  Sex: Female

DRUGS (3)
  1. PALYNZIQ [Suspect]
     Active Substance: PEGVALIASE-PQPZ
     Indication: Phenylketonuria
     Dosage: 10 MILLIGRAM
  2. FAMOTIDINE [Concomitant]
     Active Substance: FAMOTIDINE
     Indication: Premedication
     Dosage: 20 MILLIGRAM
  3. FEXOFENADINE HYDROCHLORIDE [Concomitant]
     Active Substance: FEXOFENADINE HYDROCHLORIDE
     Indication: Premedication
     Dosage: 60 MILLIGRAM

REACTIONS (1)
  - Graves^ disease [Not Recovered/Not Resolved]

NARRATIVE: CASE EVENT DATE: 20250820
